FAERS Safety Report 8438855-6 (Version None)
Quarter: 2012Q2

REPORT INFORMATION
  Report Type: 
  Country: None (occurrence: None)
  Receive Date: 20120606
  Receipt Date: 20120522
  Transmission Date: 20120825
  Serious: Yes (Other)
  Sender: FDA-Public Use
  Company Number: HRA-CDB20120157

PATIENT
  Age: 23 Year
  Sex: Female

DRUGS (1)
  1. ELLA [Suspect]
     Indication: POST COITAL CONTRACEPTION
     Dosage: 30 MG (30 MG, 1 IN 1 D)
     Dates: start: 20120229

REACTIONS (2)
  - UNINTENDED PREGNANCY [None]
  - MATERNAL EXPOSURE DURING PREGNANCY [None]
